FAERS Safety Report 25274084 (Version 1)
Quarter: 2025Q2

REPORT INFORMATION
  Report Type: Spontaneous
  Country: US (occurrence: US)
  Receive Date: 20250506
  Receipt Date: 20250506
  Transmission Date: 20250717
  Serious: Yes (Hospitalization)
  Sender: ELI LILLY AND COMPANY
  Company Number: US-ELI_LILLY_AND_COMPANY-US202504023357

PATIENT

DRUGS (2)
  1. ZEPBOUND [Interacting]
     Active Substance: TIRZEPATIDE
     Indication: Sleep-related eating disorder
     Route: 065
  2. HYDROCORTISONE [Interacting]
     Active Substance: HYDROCORTISONE
     Indication: Addison^s disease
     Route: 065

REACTIONS (3)
  - Addison^s disease [Unknown]
  - Drug interaction [Unknown]
  - Off label use [Unknown]
